FAERS Safety Report 7110972-2 (Version None)
Quarter: 2010Q4

REPORT INFORMATION
  Report Type: 
  Country: None (occurrence: None)
  Receive Date: 20101118
  Receipt Date: 20101116
  Transmission Date: 20110411
  Serious: Yes (Other)
  Sender: FDA-Public Use
  Company Number: US-PFIZER INC-2010149892

PATIENT
  Sex: Female
  Weight: 83.9 kg

DRUGS (1)
  1. CEFDINIR [Suspect]
     Indication: INFLUENZA LIKE ILLNESS
     Dosage: 300 MG, 2X/DAY
     Route: 048
     Dates: start: 20101110, end: 20101115

REACTIONS (5)
  - ABDOMINAL PAIN LOWER [None]
  - DIARRHOEA [None]
  - HAEMATOCHEZIA [None]
  - MUCOUS STOOLS [None]
  - VOMITING [None]
